FAERS Safety Report 4804445-7 (Version None)
Quarter: 2005Q4

REPORT INFORMATION
  Report Type: 
  Country: None (occurrence: None)
  Receive Date: 20051014
  Receipt Date: 20051006
  Transmission Date: 20060501
  Serious: Yes (Hospitalization, Other)
  Sender: FDA-Public Use
  Company Number: 2005138742

PATIENT
  Sex: Female
  Weight: 72.5755 kg

DRUGS (13)
  1. NEURONTIN [Suspect]
     Indication: ESSENTIAL TREMOR
     Dosage: 600 MG (100 MG, 2 IN 1 D),
  2. PREVACID [Concomitant]
  3. POTASSIUM (POTASSIUM) [Concomitant]
  4. WELLBUTRIN [Concomitant]
  5. LANOXIN [Concomitant]
  6. WARFARIN SODIUM [Concomitant]
  7. SYNTHROID [Concomitant]
  8. LEXAPRO [Concomitant]
  9. TRICOR [Concomitant]
  10. FUROSEMIDE [Concomitant]
  11. FISH OIL (FISH OIL) [Concomitant]
  12. ECOTRIN (ACETYLSALICYLIC ACID) [Concomitant]
  13. LORAZEPAM [Concomitant]

REACTIONS (2)
  - ATRIAL FIBRILLATION [None]
  - HEART VALVE STENOSIS [None]
